FAERS Safety Report 8767107 (Version 1)
Quarter: 2012Q4

REPORT INFORMATION
  Report Type: 
  Country: CH (occurrence: CH)
  Receive Date: 20120904
  Receipt Date: 20120904
  Transmission Date: 20130627
  Serious: Yes (Death, Hospitalization)
  Sender: FDA-Public Use
  Company Number: CH-JNJFOC-20120814053

PATIENT
  Age: 70 Year
  Sex: Female

DRUGS (6)
  1. DOXORUBICIN HYDROCHLORIDE [Suspect]
     Indication: PLEURAL EFFUSION
     Route: 042
     Dates: start: 201010
  2. DOXORUBICIN HYDROCHLORIDE [Suspect]
     Indication: PLEURAL EFFUSION
     Dosage: stopped after 4 months
     Route: 042
     Dates: start: 200911
  3. DOXORUBICIN HYDROCHLORIDE [Suspect]
     Indication: BREAST CANCER METASTATIC
     Route: 042
     Dates: start: 201010
  4. DOXORUBICIN HYDROCHLORIDE [Suspect]
     Indication: BREAST CANCER METASTATIC
     Dosage: stopped after 4 months
     Route: 042
     Dates: start: 200911
  5. PACLITAXEL [Suspect]
     Indication: PLEURAL EFFUSION
     Route: 065
  6. PACLITAXEL [Suspect]
     Indication: BREAST CANCER METASTATIC
     Route: 065

REACTIONS (1)
  - Pneumonitis [Fatal]
